FAERS Safety Report 21487804 (Version 1)
Quarter: 2022Q4

REPORT INFORMATION
  Report Type: Spontaneous
  Country: US (occurrence: US)
  Receive Date: 20221020
  Receipt Date: 20221020
  Transmission Date: 20230113
  Serious: Yes (Death)
  Sender: FDA-Public Use
  Company Number: US-FreseniusKabi-FK202214197

PATIENT
  Age: 55 Year
  Sex: Female

DRUGS (4)
  1. FLUOROURACIL [Suspect]
     Active Substance: FLUOROURACIL
     Indication: Cholangiocarcinoma
  2. LEUCOVORIN [Suspect]
     Active Substance: LEUCOVORIN
     Indication: Cholangiocarcinoma
  3. OXALIPLATIN [Suspect]
     Active Substance: OXALIPLATIN
     Indication: Cholangiocarcinoma
  4. gemcitabine/cisplatin [Concomitant]
     Indication: Chemotherapy

REACTIONS (1)
  - Pneumonitis [Fatal]
